FAERS Safety Report 4377432-3 (Version None)
Quarter: 2004Q2

REPORT INFORMATION
  Report Type: 
  Country: None (occurrence: None)
  Receive Date: 20040609
  Receipt Date: 20040521
  Transmission Date: 20050107
  Serious: Yes (Death, Other)
  Sender: FDA-Public Use
  Company Number: JP_040503172

PATIENT
  Age: 26 Year
  Sex: Male
  Weight: 120 kg

DRUGS (3)
  1. ZYPREXA [Suspect]
     Indication: SCHIZOPHRENIA
     Dosage: 20 MG AT BEDTIME
     Dates: start: 20020403, end: 20040511
  2. LEVOTOMIN (LEVOMEPROMAZINE MALEATE) [Concomitant]
  3. ROHIPNOL (FLUNITRAZEPAM) [Concomitant]

REACTIONS (30)
  - ALANINE AMINOTRANSFERASE INCREASED [None]
  - ANURIA [None]
  - ASPARTATE AMINOTRANSFERASE INCREASED [None]
  - BLOOD CHLORIDE DECREASED [None]
  - BLOOD CHOLESTEROL INCREASED [None]
  - BLOOD GLUCOSE INCREASED [None]
  - BLOOD PRESSURE DECREASED [None]
  - BLOOD SODIUM DECREASED [None]
  - BLOOD TRIGLYCERIDES INCREASED [None]
  - CARDIAC ARREST [None]
  - COMA [None]
  - DEPRESSED LEVEL OF CONSCIOUSNESS [None]
  - DIABETIC KETOACIDOSIS [None]
  - HEART RATE INCREASED [None]
  - HYPERGLYCAEMIA [None]
  - HYPERPHAGIA [None]
  - HYPERVENTILATION [None]
  - HYPOALBUMINAEMIA [None]
  - MALAISE [None]
  - METABOLIC ACIDOSIS [None]
  - NAUSEA [None]
  - PO2 DECREASED [None]
  - POLYDIPSIA [None]
  - POLYURIA [None]
  - PYREXIA [None]
  - RESTLESSNESS [None]
  - THIRST [None]
  - VOMITING [None]
  - WATER INTOXICATION [None]
  - WEIGHT INCREASED [None]
